FAERS Safety Report 13880189 (Version 2)
Quarter: 2017Q4

REPORT INFORMATION
  Report Type: Report from Study
  Country: None (occurrence: US)
  Receive Date: 20170818
  Receipt Date: 20171017
  Transmission Date: 20180320
  Serious: Yes (Other)
  Sender: FDA-Public Use
  Company Number: US-ABBVIE-17K-163-2032886-00

PATIENT
  Sex: Male

DRUGS (1)
  1. HUMIRA [Suspect]
     Active Substance: ADALIMUMAB
     Indication: COLITIS ULCERATIVE
     Route: 058
     Dates: end: 2017

REACTIONS (11)
  - Infective tenosynovitis [Recovering/Resolving]
  - Joint range of motion decreased [Unknown]
  - Haematochezia [Unknown]
  - Flatulence [Unknown]
  - Diarrhoea [Unknown]
  - Mass [Unknown]
  - Injection site bruising [Unknown]
  - Wound [Recovered/Resolved]
  - Erythema nodosum [Unknown]
  - Peripheral swelling [Unknown]
  - Cellulitis [Unknown]

NARRATIVE: CASE EVENT DATE: 2017
